FAERS Safety Report 20518823 (Version 1)
Quarter: 2022Q1

REPORT INFORMATION
  Report Type: Spontaneous
  Country: IN (occurrence: IN)
  Receive Date: 20220225
  Receipt Date: 20220225
  Transmission Date: 20220423
  Serious: Yes (Other)
  Sender: FDA-Public Use
  Company Number: IN-MYLANLABS-2022M1015493

PATIENT
  Age: 45 Year
  Sex: Female

DRUGS (4)
  1. PACLITAXEL [Suspect]
     Active Substance: PACLITAXEL
     Indication: Lymphadenopathy
     Dosage: UNK, CYCLE, SIX CYCLES
     Route: 065
  2. PACLITAXEL [Suspect]
     Active Substance: PACLITAXEL
     Indication: Breast cancer
  3. CISPLATIN [Suspect]
     Active Substance: CISPLATIN
     Indication: Lymphadenopathy
     Dosage: UNK, CYCLE, SIX CYCLES
     Route: 065
  4. CISPLATIN [Suspect]
     Active Substance: CISPLATIN
     Indication: Breast cancer

REACTIONS (1)
  - Drug ineffective [Unknown]
